FAERS Safety Report 5119330-3 (Version None)
Quarter: 2006Q4

REPORT INFORMATION
  Report Type: 
  Country: None (occurrence: None)
  Receive Date: 20061003
  Receipt Date: 20060919
  Transmission Date: 20070319
  Serious: Yes (Hospitalization)
  Sender: FDA-Public Use
  Company Number: FRWYE960319SEP06

PATIENT
  Age: 72 Year
  Sex: Male

DRUGS (3)
  1. ENBREL [Suspect]
     Indication: PSORIATIC ARTHROPATHY
     Route: 058
     Dates: start: 20060724, end: 20060807
  2. ACTONEL [Concomitant]
     Route: 048
     Dates: start: 20020615
  3. CORTANCYL [Concomitant]
     Route: 048
     Dates: start: 19930615

REACTIONS (16)
  - ARTHRALGIA [None]
  - ASTHENIA [None]
  - BACK PAIN [None]
  - C-REACTIVE PROTEIN INCREASED [None]
  - DIARRHOEA [None]
  - ERYTHEMA [None]
  - FACE OEDEMA [None]
  - HEADACHE [None]
  - HYPERHIDROSIS [None]
  - HYPERSENSITIVITY [None]
  - MYALGIA [None]
  - NECK PAIN [None]
  - PRURITUS [None]
  - PYREXIA [None]
  - TRANSAMINASES INCREASED [None]
  - TREMOR [None]
